FAERS Safety Report 8980717 (Version 2)
Quarter: 2013Q1

REPORT INFORMATION
  Report Type: Spontaneous
  Country: US (occurrence: US)
  Receive Date: 20121221
  Receipt Date: 20130205
  Transmission Date: 20140127
  Serious: Yes (Hospitalization)
  Sender: FDA-Public Use
  Company Number: US-PFIZER INC-2012321674

PATIENT
  Age: 60 Year
  Sex: Female
  Weight: 50.8 kg

DRUGS (13)
  1. PREMARIN [Suspect]
     Indication: VULVOVAGINAL DRYNESS
     Dosage: UNK
     Route: 067
     Dates: start: 2009, end: 201209
  2. PREMARIN [Suspect]
     Indication: OESTROGEN THERAPY
     Dosage: 0.625 MG/G, AS NEEDED
  3. GLUCOPHAGE [Concomitant]
     Indication: DIABETES MELLITUS
     Dosage: 1000 MG, 2X/DAY
     Route: 048
  4. LIPITOR [Concomitant]
     Indication: BLOOD CHOLESTEROL INCREASED
     Dosage: 40 MG, DAILY
     Route: 048
  5. SYNTHROID [Concomitant]
     Indication: THYROID DISORDER
     Dosage: 50 UG, DAILY
     Route: 048
  6. FOSAMAX [Concomitant]
     Indication: OSTEOPOROSIS
     Dosage: 70 MG, WEEKLY
     Route: 048
  7. WELLBUTRIN [Concomitant]
     Indication: DEPRESSION
     Dosage: 72 MG, DAILY
     Route: 048
  8. PROZAC [Concomitant]
     Indication: DEPRESSION
     Dosage: 20 MG, DAILY
     Route: 048
  9. CONCERTA [Concomitant]
     Indication: BIPOLAR DISORDER
     Dosage: 72 MG, DAILY
     Route: 048
  10. CONCERTA [Concomitant]
     Indication: ANXIETY
  11. CONCERTA [Concomitant]
     Indication: DEPRESSION
  12. PRIMIDONE [Concomitant]
     Dosage: 100 MG, DAILY
     Route: 048
  13. RISPERIDONE [Concomitant]
     Dosage: 0.5 MG, DAILY

REACTIONS (1)
  - Ankle fracture [Recovered/Resolved]
